FAERS Safety Report 11178002 (Version 5)
Quarter: 2015Q3

REPORT INFORMATION
  Report Type: Spontaneous
  Country: US (occurrence: US)
  Receive Date: 20150610
  Receipt Date: 20150902
  Transmission Date: 20151125
  Serious: Yes (Other)
  Sender: FDA-Public Use
  Company Number: US-SA-2015SA080319

PATIENT
  Age: 75 Year
  Sex: Male

DRUGS (1)
  1. ICY HOT MEDICATED NO MESS APPLICATOR [Suspect]
     Active Substance: MENTHOL
     Indication: MUSCLE STRAIN
     Route: 065
     Dates: start: 20150519, end: 20150519

REACTIONS (8)
  - Pain [Recovered/Resolved]
  - Pyrexia [Unknown]
  - Impaired work ability [Unknown]
  - Prostate cancer [Unknown]
  - Burns second degree [Recovered/Resolved]
  - Scar [Not Recovered/Not Resolved]
  - Blister [Unknown]
  - Cellulitis [Unknown]

NARRATIVE: CASE EVENT DATE: 20150520
